FAERS Safety Report 14509204 (Version 1)
Quarter: 2018Q1

REPORT INFORMATION
  Report Type: Spontaneous
  Country: US (occurrence: US)
  Receive Date: 20180209
  Receipt Date: 20180209
  Transmission Date: 20180509
  Serious: Yes (Disabling, Other)
  Sender: FDA-Public Use
  Company Number: US-TEVA-2018-US-856189

PATIENT
  Sex: Female

DRUGS (1)
  1. AMIODARONE [Suspect]
     Active Substance: AMIODARONE
     Indication: ATRIAL FIBRILLATION

REACTIONS (19)
  - Dyspnoea [Unknown]
  - Wheezing [Unknown]
  - Asthenia [Unknown]
  - Alopecia [Unknown]
  - Fatigue [Unknown]
  - Vision blurred [Unknown]
  - Anaemia [Unknown]
  - Confusional state [Unknown]
  - Adverse event [Unknown]
  - Blindness [Unknown]
  - Loss of personal independence in daily activities [Unknown]
  - Toxicity to various agents [Unknown]
  - Weight fluctuation [Unknown]
  - Traumatic lung injury [Unknown]
  - Visual impairment [Unknown]
  - Haemorrhage [Unknown]
  - Off label use [Unknown]
  - Cough [Unknown]
  - Fatigue [Unknown]

NARRATIVE: CASE EVENT DATE: 201301
